FAERS Safety Report 9264525 (Version 26)
Quarter: 2017Q1

REPORT INFORMATION
  Report Type: Spontaneous
  Country: CA (occurrence: CA)
  Receive Date: 20130501
  Receipt Date: 20170208
  Transmission Date: 20170429
  Serious: Yes (Hospitalization, Other)
  Sender: FDA-Public Use
  Company Number: CA-ROCHE-1217527

PATIENT
  Age: 76 Year
  Sex: Female

DRUGS (22)
  1. ADVAIR HFA [Concomitant]
     Active Substance: FLUTICASONE PROPIONATE\SALMETEROL XINAFOATE
  2. GUAIFENESIN. [Concomitant]
     Active Substance: GUAIFENESIN
  3. XOLAIR [Suspect]
     Active Substance: OMALIZUMAB
     Route: 058
     Dates: start: 20130731
  4. XOLAIR [Suspect]
     Active Substance: OMALIZUMAB
     Route: 058
     Dates: start: 20160309
  5. XOLAIR [Suspect]
     Active Substance: OMALIZUMAB
     Route: 058
     Dates: start: 20151123
  6. XOLAIR [Suspect]
     Active Substance: OMALIZUMAB
     Route: 058
     Dates: start: 20160407
  7. SINGULAIR [Concomitant]
     Active Substance: MONTELUKAST SODIUM
  8. XOLAIR [Suspect]
     Active Substance: OMALIZUMAB
     Route: 058
     Dates: start: 20130703
  9. XOLAIR [Suspect]
     Active Substance: OMALIZUMAB
     Route: 058
     Dates: start: 20150903
  10. XOLAIR [Suspect]
     Active Substance: OMALIZUMAB
     Route: 058
     Dates: start: 20151029
  11. XOLAIR [Suspect]
     Active Substance: OMALIZUMAB
     Route: 058
     Dates: start: 20131023
  12. XOLAIR [Suspect]
     Active Substance: OMALIZUMAB
     Route: 058
     Dates: start: 20130320
  13. FLOVENT [Concomitant]
     Active Substance: FLUTICASONE PROPIONATE
  14. PREVACID [Concomitant]
     Active Substance: LANSOPRAZOLE
  15. VENTOLIN [Concomitant]
     Active Substance: ALBUTEROL SULFATE
  16. XOLAIR [Suspect]
     Active Substance: OMALIZUMAB
     Route: 058
     Dates: start: 20131115
  17. XOLAIR [Suspect]
     Active Substance: OMALIZUMAB
     Route: 058
     Dates: start: 20140226
  18. XOLAIR [Suspect]
     Active Substance: OMALIZUMAB
     Route: 058
     Dates: start: 20150609
  19. XOLAIR [Suspect]
     Active Substance: OMALIZUMAB
     Indication: ASTHMA
     Route: 058
     Dates: start: 20121105
  20. XOLAIR [Suspect]
     Active Substance: OMALIZUMAB
     Route: 058
     Dates: start: 20130605
  21. EPIPEN [Concomitant]
     Active Substance: EPINEPHRINE
  22. SPIRIVA [Concomitant]
     Active Substance: TIOTROPIUM BROMIDE MONOHYDRATE

REACTIONS (32)
  - Blood pressure systolic increased [Not Recovered/Not Resolved]
  - Hypersensitivity [Unknown]
  - Fear of disease [Unknown]
  - Nasopharyngitis [Recovered/Resolved]
  - Pyrexia [Unknown]
  - Lower respiratory tract infection [Recovered/Resolved]
  - Respiratory disorder [Unknown]
  - Upper respiratory tract infection [Unknown]
  - Pain in extremity [Unknown]
  - Upper-airway cough syndrome [Unknown]
  - Stress [Unknown]
  - Laryngitis [Recovering/Resolving]
  - Oxygen saturation decreased [Recovered/Resolved]
  - Pain [Unknown]
  - Typical aura without headache [Unknown]
  - Malaise [Recovering/Resolving]
  - Dyspnoea [Unknown]
  - Heart rate increased [Recovered/Resolved]
  - Chest discomfort [Unknown]
  - Oropharyngeal pain [Unknown]
  - Throat irritation [Unknown]
  - Palpitations [Unknown]
  - Thrombosis [Unknown]
  - Pneumonia [Unknown]
  - Productive cough [Recovered/Resolved]
  - Rhinorrhoea [Unknown]
  - Post procedural complication [Unknown]
  - Fall [Unknown]
  - Wheezing [Unknown]
  - Lymphadenopathy [Recovered/Resolved]
  - Asthma [Unknown]
  - Cough [Unknown]

NARRATIVE: CASE EVENT DATE: 201212
